FAERS Safety Report 24527288 (Version 1)
Quarter: 2024Q4

REPORT INFORMATION
  Report Type: Report from Study
  Country: US (occurrence: US)
  Receive Date: 20241021
  Receipt Date: 20241021
  Transmission Date: 20250115
  Serious: No
  Sender: ROCHE
  Company Number: US-ROCHE-3547314

PATIENT
  Age: 64 Year
  Sex: Male

DRUGS (1)
  1. COTELLIC [Suspect]
     Active Substance: COBIMETINIB
     Indication: Pancreatic carcinoma
     Dosage: UNKNOWN
     Route: 048

REACTIONS (2)
  - Product prescribing issue [Unknown]
  - Off label use [Unknown]
